FAERS Safety Report 8770198 (Version 7)
Quarter: 2013Q3

REPORT INFORMATION
  Report Type: Spontaneous
  Country: US (occurrence: US)
  Receive Date: 20120906
  Receipt Date: 20130712
  Transmission Date: 20140515
  Serious: Yes (Hospitalization, Other)
  Sender: FDA-Public Use
  Company Number: US-009507513-1209USA001498

PATIENT
  Sex: Female
  Weight: 109.75 kg

DRUGS (3)
  1. NUVARING [Suspect]
     Indication: MENORRHAGIA
     Dosage: UNK
     Route: 067
     Dates: start: 20100901, end: 20100906
  2. NUVARING [Suspect]
     Indication: MENSTRUATION IRREGULAR
  3. NUVARING [Suspect]
     Indication: CONTRACEPTION

REACTIONS (20)
  - Dyspnoea [Unknown]
  - Pulmonary embolism [Recovered/Resolved]
  - Deep vein thrombosis [Recovered/Resolved]
  - Non-cardiac chest pain [Recovering/Resolving]
  - Ovarian cyst [Unknown]
  - Cellulitis [Unknown]
  - Transfusion [Unknown]
  - Haemorrhagic anaemia [Unknown]
  - Off label use [Unknown]
  - Asthma [Unknown]
  - Hyperlipidaemia [Unknown]
  - Pain in extremity [Unknown]
  - Pulmonary embolism [Recovered/Resolved]
  - Deep vein thrombosis [Unknown]
  - Bronchitis [Unknown]
  - Anaemia [Unknown]
  - Melaena [Unknown]
  - Coagulation factor VIII level increased [Unknown]
  - Fibromyalgia [Unknown]
  - Anxiety [Unknown]
